FAERS Safety Report 7029739-9 (Version None)
Quarter: 2010Q4

REPORT INFORMATION
  Report Type: 
  Country: None (occurrence: None)
  Receive Date: 20101005
  Receipt Date: 20101005
  Transmission Date: 20110411
  Serious: No
  Sender: FDA-Public Use
  Company Number: None

PATIENT
  Age: 76 Year
  Sex: Male
  Weight: 118.8424 kg

DRUGS (1)
  1. NUVIGIL [Suspect]
     Indication: POOR QUALITY SLEEP
     Dosage: ONE TABLET DAY PO
     Route: 048
     Dates: start: 20101003, end: 20101003

REACTIONS (2)
  - PRURITUS [None]
  - RASH ERYTHEMATOUS [None]
